FAERS Safety Report 5542388-4 (Version None)
Quarter: 2007Q4

REPORT INFORMATION
  Report Type: 
  Country: None (occurrence: None)
  Receive Date: 20071129
  Receipt Date: 20070420
  Transmission Date: 20080405
  Serious: Yes (Hospitalization)
  Sender: FDA-Public Use
  Company Number: US200704000946

PATIENT
  Age: 45 Year
  Sex: Male

DRUGS (3)
  1. ZYPREXA [Suspect]
     Indication: SCHIZOPHRENIA, PARANOID TYPE
     Dosage: 50 MG, DAILY (1/D), ORAL; 10 MG, DAILY (1/D), ORAL
     Route: 048
     Dates: start: 20050101
  2. ABILIFY [Concomitant]
  3. BUSPAR [Concomitant]

REACTIONS (4)
  - BLOOD GLUCOSE INCREASED [None]
  - DELUSION [None]
  - DRUG INEFFECTIVE [None]
  - OVERDOSE [None]
